FAERS Safety Report 10641990 (Version 8)
Quarter: 2016Q4

REPORT INFORMATION
  Report Type: Spontaneous
  Country: JP (occurrence: JP)
  Receive Date: 20141209
  Receipt Date: 20161201
  Transmission Date: 20170206
  Serious: Yes (Hospitalization, Other)
  Sender: FDA-Public Use
  Company Number: JP-ABBVIE-14K-087-1317915-00

PATIENT
  Age: 46 Year
  Sex: Female
  Weight: 58 kg

DRUGS (13)
  1. PREDNISOLONE. [Concomitant]
     Active Substance: PREDNISOLONE
     Indication: COLITIS ULCERATIVE
     Route: 048
     Dates: start: 20100212, end: 20100917
  2. CLOSTRIDIUM BUTYRICUM [Concomitant]
     Active Substance: CLOSTRIDIUM BUTYRICUM SPORES STRAIN M-55
     Route: 048
     Dates: start: 20130812
  3. BIFIDOBACTERIUM [Concomitant]
     Active Substance: BIFIDOBACTERIUM LONGUM
     Indication: GASTROINTESTINAL DISORDER
     Route: 048
     Dates: start: 20090327, end: 20110204
  4. ANTIBIOTICS-RESISTANT LACTIC ACID BACTERIAE [Concomitant]
     Active Substance: UNSPECIFIED INGREDIENT
     Indication: GASTROINTESTINAL DISORDER
     Route: 048
     Dates: start: 20110502, end: 20130812
  5. HUMIRA [Suspect]
     Active Substance: ADALIMUMAB
     Indication: COLITIS ULCERATIVE
     Route: 058
     Dates: start: 20100405, end: 20100405
  6. HUMIRA [Suspect]
     Active Substance: ADALIMUMAB
     Route: 058
     Dates: start: 20100419, end: 20150226
  7. PREDNISOLONE. [Concomitant]
     Active Substance: PREDNISOLONE
     Route: 048
     Dates: start: 20101204, end: 20101217
  8. CLOSTRIDIUM BUTYRICUM [Concomitant]
     Active Substance: CLOSTRIDIUM BUTYRICUM SPORES STRAIN M-55
     Indication: GASTROINTESTINAL DISORDER
     Route: 048
     Dates: start: 20120511, end: 20120829
  9. SODIUM FERROUS CITRATE [Concomitant]
     Active Substance: SODIUM FERROUS CITRATE
     Indication: ANAEMIA
     Route: 048
     Dates: start: 20110221, end: 20110318
  10. AZATHIOPRINE. [Concomitant]
     Active Substance: AZATHIOPRINE
     Route: 048
     Dates: start: 20131112, end: 20131209
  11. PREDNISOLONE. [Concomitant]
     Active Substance: PREDNISOLONE
     Route: 048
     Dates: start: 20100918, end: 20101203
  12. PREDNISOLONE. [Concomitant]
     Active Substance: PREDNISOLONE
     Route: 048
     Dates: start: 20101218, end: 20101231
  13. AZATHIOPRINE. [Concomitant]
     Active Substance: AZATHIOPRINE
     Indication: COLITIS ULCERATIVE

REACTIONS (2)
  - Invasive ductal breast carcinoma [Recovered/Resolved]
  - Endocrine neoplasm malignant [Unknown]

NARRATIVE: CASE EVENT DATE: 20141222
